FAERS Safety Report 6611387-3 (Version None)
Quarter: 2010Q1

REPORT INFORMATION
  Report Type: 
  Country: None (occurrence: None)
  Receive Date: 20100222
  Receipt Date: 20100209
  Transmission Date: 20100710
  Serious: Yes (Other)
  Sender: FDA-Public Use
  Company Number: B0634538A

PATIENT
  Sex: Male

DRUGS (5)
  1. BUSULPHAN (FORMULATION UNKNOWN) (BUSULFAN) (GENERIC) [Suspect]
     Dosage: ORAL
     Route: 048
  2. CYCLOSPORINE [Suspect]
     Indication: PROPHYLAXIS AGAINST GRAFT VERSUS HOST DISEASE
  3. STEROID [Concomitant]
  4. CYCLOPHOSPHAMIDE [Suspect]
     Dosage: INTRAVENOUS
  5. ANTITHYMOCYTE IG [Suspect]

REACTIONS (5)
  - EPSTEIN-BARR VIRUS ASSOCIATED LYMPHOPROLIFERATIVE DISORDER [None]
  - HYPOTENSION [None]
  - PLEURAL EFFUSION [None]
  - PYREXIA [None]
  - SPLENOMEGALY [None]
